FAERS Safety Report 5318293-5 (Version None)
Quarter: 2007Q2

REPORT INFORMATION
  Report Type: 
  Country: None (occurrence: None)
  Receive Date: 20070507
  Receipt Date: 20070424
  Transmission Date: 20071010
  Serious: Yes (Hospitalization)
  Sender: FDA-Public Use
  Company Number: US-ELI_LILLY_AND_COMPANY-US200703006038

PATIENT
  Sex: Female

DRUGS (7)
  1. CYMBALTA [Suspect]
     Indication: FIBROMYALGIA
     Dosage: 20 MG, UNK
     Dates: start: 20070217, end: 20070316
  2. CYMBALTA [Suspect]
     Dosage: 30 MG, DAILY (1/D)
     Dates: start: 20070317, end: 20070318
  3. KLONOPIN [Concomitant]
  4. ACIPHEX [Concomitant]
  5. FLUOXETINE [Concomitant]
     Indication: ANXIETY
     Dosage: 5 MG, DAILY (1/D)
     Dates: start: 20070330
  6. FLUOXETINE [Concomitant]
     Dosage: 10 MG, DAILY (1/D)
     Dates: start: 20070401, end: 20070401
  7. FLUOXETINE [Concomitant]
     Dosage: 15 MG, UNK
     Dates: start: 20070401

REACTIONS (5)
  - BLOOD PRESSURE INCREASED [None]
  - CARDIAC ENZYMES INCREASED [None]
  - CHEST PAIN [None]
  - HEADACHE [None]
  - MITRAL VALVE PROLAPSE [None]
